FAERS Safety Report 18905644 (Version 1)
Quarter: 2021Q1

REPORT INFORMATION
  Report Type: Spontaneous
  Country: NO (occurrence: NO)
  Receive Date: 20210217
  Receipt Date: 20210217
  Transmission Date: 20210420
  Serious: Yes (Disabling)
  Sender: FDA-Public Use
  Company Number: NO-SA-2021SA055672

PATIENT
  Age: 52 Year
  Sex: Female

DRUGS (12)
  1. DESLORATADINE. [Suspect]
     Active Substance: DESLORATADINE
     Indication: HYPERSENSITIVITY
     Dosage: TWICE DAILY WHEN NEEDED
     Route: 048
     Dates: start: 2012
  2. OMEGA 3D [Concomitant]
     Dosage: UNK
     Route: 065
  3. FEXOFENADINE [Suspect]
     Active Substance: FEXOFENADINE HYDROCHLORIDE
     Indication: HYPERSENSITIVITY
  4. CETIRIZINE ZENTIVA [Suspect]
     Active Substance: CETIRIZINE HYDROCHLORIDE
     Indication: SEASONAL ALLERGY
  5. AGE LA MAX OMEGA 6 [Concomitant]
     Dosage: UNK
     Route: 065
  6. OMEGA 9 FATTY ACIDS [Concomitant]
     Dosage: UNK
     Route: 065
  7. DESLORATADINE. [Suspect]
     Active Substance: DESLORATADINE
     Indication: URTICARIA
  8. CETIRIZINE ZENTIVA [Suspect]
     Active Substance: CETIRIZINE HYDROCHLORIDE
     Indication: HYPERSENSITIVITY
     Dosage: TWICE DAILY WHEN NEEDED
     Route: 048
     Dates: start: 2019
  9. GARLIC NATURAL [Concomitant]
     Dosage: UNK
     Route: 065
  10. Q10 [Concomitant]
     Active Substance: DIETARY SUPPLEMENT\UBIDECARENONE
     Dosage: UNK
     Route: 065
  11. FEXOFENADINE [Suspect]
     Active Substance: FEXOFENADINE HYDROCHLORIDE
     Indication: SEASONAL ALLERGY
     Dosage: TWICE DAILY WHEN NEEDED
     Route: 048
     Dates: start: 2019
  12. TRILAFON [Concomitant]
     Active Substance: PERPHENAZINE
     Indication: MENTAL DISORDER
     Dosage: GET THE ENTIRE AMPOULE EVERY 3 WEEKS
     Route: 065
     Dates: start: 2006

REACTIONS (3)
  - Fatigue [Not Recovered/Not Resolved]
  - Diarrhoea [Not Recovered/Not Resolved]
  - Dizziness [Not Recovered/Not Resolved]

NARRATIVE: CASE EVENT DATE: 2019
